FAERS Safety Report 5026670-5 (Version None)
Quarter: 2006Q2

REPORT INFORMATION
  Report Type: 
  Country: None (occurrence: None)
  Receive Date: 20060615
  Receipt Date: 20060605
  Transmission Date: 20061013
  Serious: Yes (Hospitalization)
  Sender: FDA-Public Use
  Company Number: JP-JPN-A200601875

PATIENT
  Age: 72 Year
  Sex: Female

DRUGS (2)
  1. ZANTAC [Suspect]
     Indication: GASTRIC ULCER
     Dosage: 75MG PER DAY
     Route: 048
     Dates: start: 20060309, end: 20060531
  2. BAKUMONDO-TO [Concomitant]
     Route: 048

REACTIONS (1)
  - LIVER DISORDER [None]
